FAERS Safety Report 22132855 (Version 1)
Quarter: 2023Q1

REPORT INFORMATION
  Report Type: Spontaneous
  Country: US (occurrence: US)
  Receive Date: 20230323
  Receipt Date: 20230323
  Transmission Date: 20230418
  Serious: No
  Sender: FDA-Public Use
  Company Number: US-SA-SAC20230321000541

PATIENT
  Sex: Female

DRUGS (2)
  1. DUPIXENT [Suspect]
     Active Substance: DUPILUMAB
     Indication: Neurodermatitis
     Dosage: 300 MG, QOW
     Route: 058
     Dates: start: 202001
  2. OXBRYTA [Suspect]
     Active Substance: VOXELOTOR
     Dosage: UNK
     Route: 065
     Dates: start: 202209

REACTIONS (2)
  - Diarrhoea [Recovered/Resolved]
  - Haemoglobin increased [Unknown]
